FAERS Safety Report 7673101-2 (Version None)
Quarter: 2011Q3

REPORT INFORMATION
  Report Type: 
  Country: None (occurrence: None)
  Receive Date: 20110810
  Receipt Date: 20110801
  Transmission Date: 20111222
  Serious: Yes (Other)
  Sender: FDA-Public Use
  Company Number: US-BIOGENIDEC-2011BI019634

PATIENT
  Age: 42 Year
  Sex: Female
  Weight: 104 kg

DRUGS (8)
  1. XANAX [Concomitant]
     Route: 048
  2. AVONEX [Suspect]
     Indication: MULTIPLE SCLEROSIS
     Route: 030
     Dates: start: 20100430
  3. PROZAC [Concomitant]
     Route: 048
  4. AVONEX [Suspect]
     Route: 030
     Dates: start: 20071204
  5. TYLENOL-500 [Concomitant]
  6. LISINOPRIL [Concomitant]
     Route: 048
  7. FLEXERIL [Concomitant]
     Route: 048
  8. MELOXICAM [Concomitant]
     Route: 048

REACTIONS (1)
  - BREAST CANCER [None]
